FAERS Safety Report 8613122-6 (Version None)
Quarter: 2012Q3

REPORT INFORMATION
  Report Type: 
  Country: None (occurrence: None)
  Receive Date: 20120822
  Receipt Date: 20120813
  Transmission Date: 20120928
  Serious: Yes (Death, Life-Threatening, Hospitalization, Other)
  Sender: FDA-Public Use
  Company Number: FR-009507513-2012SP031038

PATIENT
  Age: 49 Year
  Sex: Male
  Weight: 96 kg

DRUGS (11)
  1. BOCEPREVIR [Suspect]
     Indication: HEPATITIS C
     Dosage: 800 MG, TID
     Dates: start: 20120529, end: 20120606
  2. VITAMIN D [Concomitant]
     Indication: VITAMIN D DEFICIENCY
     Dosage: 30000 IU, QOW
  3. ALDACTONE [Concomitant]
     Indication: HEPATIC CIRRHOSIS
     Dosage: 75 MG, QD
     Dates: start: 20100421
  4. IXEL [Concomitant]
     Indication: PRURITUS
     Dosage: 50 MG, QD
     Dates: start: 20090101
  5. NEUPOGEN [Concomitant]
     Indication: NEUTROPENIA
     Dosage: 30000 IU, QW
     Dates: start: 20090604
  6. DELURSAN [Concomitant]
     Indication: PRODUCT USED FOR UNKNOWN INDICATION
  7. ABILIFY [Concomitant]
     Indication: DEPRESSION
     Dosage: 5 MG, QD
     Dates: start: 20100529
  8. PEGASYS [Suspect]
     Indication: HEPATITIS C
     Dosage: 180 ?G, QW
     Dates: start: 20120430, end: 20120606
  9. LASIX [Concomitant]
     Indication: HEPATIC CIRRHOSIS
     Dosage: 40 MG, QD
     Dates: start: 20100421
  10. REVOLADE [Concomitant]
     Indication: THROMBOCYTOPENIA
     Dosage: 25 MG, QD
     Dates: start: 20120604
  11. COPEGUS [Suspect]
     Indication: HEPATITIS C
     Dosage: 1200 MG, QD
     Dates: start: 20120430, end: 20120606

REACTIONS (9)
  - ASTHENIA [None]
  - NEUTROPENIA [None]
  - VOMITING [None]
  - SEPTIC SHOCK [None]
  - PYREXIA [None]
  - LEUKOPENIA [None]
  - INFECTIOUS PERITONITIS [None]
  - MULTI-ORGAN FAILURE [None]
  - GENERAL PHYSICAL HEALTH DETERIORATION [None]
